FAERS Safety Report 23936076 (Version 1)
Quarter: 2024Q2

REPORT INFORMATION
  Report Type: Spontaneous
  Country: JP (occurrence: JP)
  Receive Date: 20240604
  Receipt Date: 20240604
  Transmission Date: 20240716
  Serious: Yes (Hospitalization)
  Sender: FDA-Public Use
  Company Number: JP-NOVITIUMPHARMA-2024JPNVP00975

PATIENT
  Age: 3 Year
  Sex: Female

DRUGS (5)
  1. SULFAMETHOXAZOLE\TRIMETHOPRIM [Suspect]
     Active Substance: SULFAMETHOXAZOLE\TRIMETHOPRIM
     Indication: Pneumocystis jirovecii pneumonia
     Route: 042
  2. PREDNISOLONE [Concomitant]
     Active Substance: PREDNISOLONE
     Indication: Kaposiform haemangioendothelioma
     Dosage: DOSE REDUCED
  3. PREDNISOLONE [Concomitant]
     Active Substance: PREDNISOLONE
     Indication: Pneumocystis jirovecii pneumonia
  4. EVEROLIMUS [Concomitant]
     Active Substance: EVEROLIMUS
     Indication: Kaposiform haemangioendothelioma
  5. EVEROLIMUS [Concomitant]
     Active Substance: EVEROLIMUS
     Indication: Haemangioma-thrombocytopenia syndrome

REACTIONS (1)
  - Drug ineffective [Unknown]
